FAERS Safety Report 24467642 (Version 1)
Quarter: 2024Q4

REPORT INFORMATION
  Report Type: Report from Study
  Country: US (occurrence: US)
  Receive Date: 20241018
  Receipt Date: 20241018
  Transmission Date: 20250115
  Serious: No
  Sender: ROCHE
  Company Number: US-ROCHE-3577459

PATIENT
  Age: 64 Year
  Sex: Male

DRUGS (15)
  1. XOLAIR [Suspect]
     Active Substance: OMALIZUMAB
     Indication: Urticaria
     Route: 065
  2. VALSARTAN [Concomitant]
     Active Substance: VALSARTAN
     Route: 065
  3. CELEBREX [Concomitant]
     Active Substance: CELECOXIB
  4. SINGULAIR [Concomitant]
     Active Substance: MONTELUKAST SODIUM
     Route: 065
  5. ATORVASTATIN [Concomitant]
     Active Substance: ATORVASTATIN
     Route: 065
  6. AUVI-Q [Concomitant]
     Active Substance: EPINEPHRINE
  7. DULOXETINE [Concomitant]
     Active Substance: DULOXETINE
     Route: 065
  8. FARXIGA [Concomitant]
     Active Substance: DAPAGLIFLOZIN PROPANEDIOL
  9. FENOFIBRATE [Concomitant]
     Active Substance: FENOFIBRATE
  10. HYDROXYZINE HYDROCHLORIDE [Concomitant]
     Active Substance: HYDROXYZINE HYDROCHLORIDE
  11. JANUVIA [Concomitant]
     Active Substance: SITAGLIPTIN PHOSPHATE
  12. LORATADINE [Concomitant]
     Active Substance: LORATADINE
  13. MECLIZINE [Concomitant]
     Active Substance: MECLIZINE HYDROCHLORIDE
     Route: 048
  14. METFORMIN [Concomitant]
     Active Substance: METFORMIN HYDROCHLORIDE
     Route: 065
  15. PEPCID [Concomitant]
     Active Substance: FAMOTIDINE
     Indication: Urticaria

REACTIONS (1)
  - Urticaria [Unknown]
